FAERS Safety Report 14545139 (Version 3)
Quarter: 2018Q3

REPORT INFORMATION
  Report Type: Spontaneous
  Country: US (occurrence: US)
  Receive Date: 20180218
  Receipt Date: 20180710
  Transmission Date: 20181010
  Serious: Yes (Other)
  Sender: FDA-Public Use
  Company Number: US-TEVA-2018-US-858433

PATIENT
  Age: 38 Year
  Sex: Female
  Weight: 90.72 kg

DRUGS (16)
  1. SPIRONOLACTONE. [Concomitant]
     Active Substance: SPIRONOLACTONE
  2. XANAX [Concomitant]
     Active Substance: ALPRAZOLAM
  3. TRAZODONE [Concomitant]
     Active Substance: TRAZODONE HYDROCHLORIDE
  4. POTASSIUM CHLORIDE. [Concomitant]
     Active Substance: POTASSIUM CHLORIDE
  5. PREDNISONE. [Concomitant]
     Active Substance: PREDNISONE
  6. CINQAIR [Suspect]
     Active Substance: RESLIZUMAB
     Indication: ASTHMA
     Dosage: INJECTION # 1 OF 1.
     Route: 042
     Dates: start: 20180202, end: 20180202
  7. SYMBICORT [Concomitant]
     Active Substance: BUDESONIDE\FORMOTEROL FUMARATE DIHYDRATE
  8. IPRATROPIUM [Concomitant]
     Active Substance: IPRATROPIUM
  9. OXYCODONE [Concomitant]
     Active Substance: OXYCODONE
  10. LORATIDINE [Concomitant]
     Active Substance: LORATADINE
  11. ALBUTEROL. [Concomitant]
     Active Substance: ALBUTEROL
  12. METFORMIN [Concomitant]
     Active Substance: METFORMIN HYDROCHLORIDE
  13. LINZESS [Concomitant]
     Active Substance: LINACLOTIDE
  14. QVAR [Concomitant]
     Active Substance: BECLOMETHASONE DIPROPIONATE
  15. MULTI VITAMIN [Concomitant]
     Active Substance: VITAMINS
  16. ZANTAC [Concomitant]
     Active Substance: RANITIDINE HYDROCHLORIDE

REACTIONS (8)
  - Pruritus [Recovered/Resolved]
  - Eye pruritus [Recovered/Resolved]
  - Cough [Recovered/Resolved]
  - Hypersensitivity [Recovered/Resolved]
  - Throat irritation [Recovered/Resolved]
  - Throat clearing [Recovered/Resolved]
  - Throat tightness [Recovered/Resolved]
  - Eyelid oedema [Recovered/Resolved]

NARRATIVE: CASE EVENT DATE: 20180202
